FAERS Safety Report 16971032 (Version 1)
Quarter: 2019Q4

REPORT INFORMATION
  Report Type: Spontaneous
  Country: US (occurrence: US)
  Receive Date: 20191029
  Receipt Date: 20191029
  Transmission Date: 20200122
  Serious: Yes (Other)
  Sender: FDA-Public Use
  Company Number: US-JNJFOC-20191030200

PATIENT
  Sex: Male

DRUGS (8)
  1. TROLAMINE [Concomitant]
     Active Substance: TROLAMINE
  2. DICLOFENAC                         /00372302/ [Concomitant]
     Active Substance: DICLOFENAC
     Route: 061
  3. XARELTO [Suspect]
     Active Substance: RIVAROXABAN
     Route: 048
     Dates: start: 2019
  4. HYDROPHILIC [Concomitant]
  5. SERTRALINE [Concomitant]
     Active Substance: SERTRALINE HYDROCHLORIDE
  6. METFORMIN [Concomitant]
     Active Substance: METFORMIN HYDROCHLORIDE
  7. LIDOCAINE. [Concomitant]
     Active Substance: LIDOCAINE
     Route: 061
  8. XARELTO [Suspect]
     Active Substance: RIVAROXABAN
     Indication: DEEP VEIN THROMBOSIS
     Route: 048
     Dates: start: 201903, end: 2019

REACTIONS (3)
  - Skin reaction [Unknown]
  - Thrombosis [Unknown]
  - Medication error [Unknown]

NARRATIVE: CASE EVENT DATE: 2019
